FAERS Safety Report 7142236-5 (Version None)
Quarter: 2010Q4

REPORT INFORMATION
  Report Type: 
  Country: None (occurrence: None)
  Receive Date: 20101207
  Receipt Date: 20101201
  Transmission Date: 20110411
  Serious: Yes (Other)
  Sender: FDA-Public Use
  Company Number: US-PFIZER INC-2010162472

PATIENT
  Sex: Male
  Weight: 29.025 kg

DRUGS (2)
  1. VIAGRA [Suspect]
     Indication: SEXUAL DYSFUNCTION
     Dosage: UNK
     Route: 048
     Dates: start: 20100101
  2. ADVIL [Concomitant]
     Dosage: UNK

REACTIONS (1)
  - ERECTION INCREASED [None]
